FAERS Safety Report 12502451 (Version 1)
Quarter: 2016Q2

REPORT INFORMATION
  Report Type: Spontaneous
  Country: GB (occurrence: GB)
  Receive Date: 20160627
  Receipt Date: 20160627
  Transmission Date: 20160815
  Serious: Yes (Other)
  Sender: FDA-Public Use
  Company Number: GB-APOTEX-2016AP009340

PATIENT

DRUGS (2)
  1. PAXIL [Suspect]
     Active Substance: PAROXETINE HYDROCHLORIDE
     Dosage: UNK
     Route: 065
  2. PAXIL [Suspect]
     Active Substance: PAROXETINE HYDROCHLORIDE
     Dosage: 20MG/10ML
     Route: 065
     Dates: start: 20160308

REACTIONS (25)
  - Irritability [Unknown]
  - Agitation [Unknown]
  - Insomnia [Unknown]
  - Paraesthesia [Unknown]
  - Anxiety [Unknown]
  - Suicidal ideation [Unknown]
  - Anger [Unknown]
  - Memory impairment [Unknown]
  - Dizziness [Unknown]
  - Tremor [Unknown]
  - Thinking abnormal [Unknown]
  - Muscle spasms [Unknown]
  - Vertigo [Unknown]
  - Gastrointestinal disorder [Unknown]
  - Disturbance in attention [Unknown]
  - Stress at work [Unknown]
  - Drug withdrawal syndrome [Unknown]
  - Aggression [Unknown]
  - Weight increased [Unknown]
  - Palpitations [Unknown]
  - Affect lability [Unknown]
  - Confusional state [Unknown]
  - Depression [Unknown]
  - Headache [Unknown]
  - Abnormal behaviour [Unknown]

NARRATIVE: CASE EVENT DATE: 200509
